FAERS Safety Report 11143395 (Version 3)
Quarter: 2015Q4

REPORT INFORMATION
  Report Type: Report from Study
  Country: US (occurrence: US)
  Receive Date: 20150528
  Receipt Date: 20151017
  Transmission Date: 20160304
  Serious: Yes (Death, Life-Threatening, Hospitalization)
  Sender: FDA-Public Use
  Company Number: US-AMGEN-USACT2015041811

PATIENT
  Age: 41 Year
  Sex: Female
  Weight: 56.8 kg

DRUGS (2)
  1. MEK 162 [Suspect]
     Active Substance: BINIMETINIB
     Indication: COLORECTAL CANCER METASTATIC
     Dosage: 45 MG, BID
     Route: 048
     Dates: start: 20150310, end: 20150421
  2. PANITUMUMAB [Suspect]
     Active Substance: PANITUMUMAB
     Indication: COLORECTAL CANCER METASTATIC
     Dosage: 6 MG/KG, UNK
     Route: 042
     Dates: start: 20150310, end: 20150421

REACTIONS (5)
  - Hypoxia [Not Recovered/Not Resolved]
  - Death [Fatal]
  - Platelet count decreased [Not Recovered/Not Resolved]
  - Anaemia [Not Recovered/Not Resolved]
  - Sinus tachycardia [Not Recovered/Not Resolved]

NARRATIVE: CASE EVENT DATE: 20150422
